FAERS Safety Report 24785574 (Version 1)
Quarter: 2024Q4

REPORT INFORMATION
  Report Type: Spontaneous
  Country: US (occurrence: None)
  Receive Date: 20241227
  Receipt Date: 20241227
  Transmission Date: 20250115
  Serious: Yes (Other)
  Sender: Public
  Company Number: None

PATIENT
  Age: 55 Year
  Sex: Male
  Weight: 105.75 kg

DRUGS (1)
  1. MOUNJARO [Suspect]
     Active Substance: TIRZEPATIDE
     Indication: Type 2 diabetes mellitus
     Dosage: WEEKLY SUBCUTANEOUS?
     Route: 058
     Dates: start: 20240812, end: 20241221

REACTIONS (4)
  - Seizure [None]
  - Tremor [None]
  - Myalgia [None]
  - Asthenia [None]

NARRATIVE: CASE EVENT DATE: 20241120
